FAERS Safety Report 9469860 (Version 1)
Quarter: 2013Q3

REPORT INFORMATION
  Report Type: Spontaneous
  Country: CH (occurrence: CH)
  Receive Date: 20130822
  Receipt Date: 20130822
  Transmission Date: 20140515
  Serious: Yes (Death)
  Sender: FDA-Public Use
  Company Number: CH-NAPPMUNDI-DEU-2013-0012155

PATIENT
  Age: 40 Year
  Sex: Male
  Weight: 50 kg

DRUGS (2)
  1. PALLADON [Suspect]
     Indication: TUMOUR PAIN
     Dosage: 900 MG, DAILY
     Route: 042
  2. PALLADON [Suspect]
     Dosage: 200 MG, DAILY
     Route: 042
     Dates: start: 20130628

REACTIONS (2)
  - Muscle twitching [Unknown]
  - Neoplasm progression [Fatal]
